FAERS Safety Report 9729431 (Version 1)
Quarter: 2013Q4

REPORT INFORMATION
  Report Type: Spontaneous
  Country: US (occurrence: US)
  Receive Date: 20131204
  Receipt Date: 20131204
  Transmission Date: 20140711
  Serious: No
  Sender: FDA-Public Use
  Company Number: US-GILEAD-2009-0021363

PATIENT
  Sex: Female
  Weight: 142.43 kg

DRUGS (15)
  1. LETAIRIS [Suspect]
     Indication: PULMONARY ARTERIAL HYPERTENSION
     Route: 048
     Dates: start: 20090317, end: 20090402
  2. REMODULIN [Concomitant]
  3. WARFARIN SODIUM [Concomitant]
  4. SPIRIVA [Concomitant]
  5. OXYGEN [Concomitant]
  6. LASIX [Concomitant]
  7. METOPROLOL [Concomitant]
  8. LANOXIN [Concomitant]
  9. ZYRTEC [Concomitant]
  10. NOVOLOG [Concomitant]
  11. CUTIVATE [Concomitant]
  12. OXYCODONE [Concomitant]
  13. ACIPHEX [Concomitant]
  14. STOOL SOFTENER [Concomitant]
  15. TYLENOL [Concomitant]

REACTIONS (1)
  - Fluid retention [Unknown]
